FAERS Safety Report 4457334-4 (Version None)
Quarter: 2004Q3

REPORT INFORMATION
  Report Type: 
  Country: None (occurrence: None)
  Receive Date: 20040922
  Receipt Date: 20040913
  Transmission Date: 20050211
  Serious: Yes (Death, Hospitalization, Other)
  Sender: FDA-Public Use
  Company Number: US-JNJFOC-20040903709

PATIENT
  Age: 26 Year
  Sex: Male

DRUGS (2)
  1. EXTRA STRENGTH TYLENOL [Suspect]
     Indication: SUICIDE ATTEMPT
     Dosage: 59 DOSE(S)
  2. OPIOID (OPIOIDS) [Suspect]
     Indication: SUICIDE ATTEMPT

REACTIONS (9)
  - BLOOD GLUCOSE DECREASED [None]
  - BLOOD LACTIC ACID INCREASED [None]
  - BRAIN DEATH [None]
  - ENCEPHALOPATHY [None]
  - HAEMATURIA [None]
  - HEPATIC FAILURE [None]
  - INTENTIONAL OVERDOSE [None]
  - PROTEINURIA [None]
  - RENAL FAILURE [None]
